FAERS Safety Report 10430305 (Version 2)
Quarter: 2014Q3

REPORT INFORMATION
  Report Type: Spontaneous
  Country: US (occurrence: US)
  Receive Date: 20140904
  Receipt Date: 20140904
  Transmission Date: 20150326
  Serious: Yes (Other)
  Sender: FDA-Public Use
  Company Number: US-SA-CART-1000078

PATIENT
  Age: 44 Year
  Sex: Female

DRUGS (1)
  1. CARTICEL [Suspect]
     Active Substance: AUTOLOGOUS CULTURED CHONDROCYTES
     Indication: CARTILAGE INJURY
     Dosage: UNK
     Route: 014
     Dates: start: 20110622, end: 20110622

REACTIONS (3)
  - Arthralgia [Unknown]
  - Treatment failure [Unknown]
  - Graft delamination [Unknown]
